FAERS Safety Report 21526224 (Version 1)
Quarter: 2022Q4

REPORT INFORMATION
  Report Type: Report from Study
  Country: US (occurrence: US)
  Receive Date: 20221031
  Receipt Date: 20221031
  Transmission Date: 20230113
  Serious: Yes (Hospitalization, Other)
  Sender: FDA-Public Use
  Company Number: US-GILEAD-2022-0602639

PATIENT
  Age: 55 Year
  Sex: Female

DRUGS (31)
  1. AZTREONAM LYSINE [Suspect]
     Active Substance: AZTREONAM LYSINE
     Indication: Cystic fibrosis
     Dosage: 75 MG, TID, ALTERNATING EVERY OTHER MONTH
     Route: 055
     Dates: start: 202208
  2. ADDERALL [Concomitant]
     Active Substance: AMPHETAMINE ASPARTATE\AMPHETAMINE SULFATE\DEXTROAMPHETAMINE SACCHARATE\DEXTROAMPHETAMINE SULFATE
  3. ALBUTEROL SULFATE [Concomitant]
     Active Substance: ALBUTEROL SULFATE
  4. AMITRIPTYLINE HYDROCHLORIDE [Concomitant]
     Active Substance: AMITRIPTYLINE HYDROCHLORIDE
  5. AMLODIPINE BESYLATE [Concomitant]
     Active Substance: AMLODIPINE BESYLATE
  6. CARVEDILOL [Concomitant]
     Active Substance: CARVEDILOL
  7. PROCHLORPERAZINE EDISYLATE [Concomitant]
     Active Substance: PROCHLORPERAZINE EDISYLATE
  8. DIAZEPAM [Concomitant]
     Active Substance: DIAZEPAM
  9. EPINEPHRINE [EPINEPHRINE HYDROCHLORIDE] [Concomitant]
  10. ERYTHROMYCIN [Concomitant]
     Active Substance: ERYTHROMYCIN
  11. FOLIC ACID [Concomitant]
     Active Substance: FOLIC ACID
  12. FUROSEMIDE [Concomitant]
     Active Substance: FUROSEMIDE
  13. HUMALOG [Concomitant]
     Active Substance: INSULIN LISPRO
  14. HYOSCYAMINE SULFATE [Concomitant]
     Active Substance: HYOSCYAMINE SULFATE
  15. KEPPRA [Concomitant]
     Active Substance: LEVETIRACETAM
  16. LAMICTAL [Concomitant]
     Active Substance: LAMOTRIGINE
  17. LEVALBUTEROL HYDROCHLORIDE [Concomitant]
     Active Substance: LEVALBUTEROL HYDROCHLORIDE
  18. LEVEMIR [Concomitant]
     Active Substance: INSULIN DETEMIR
  19. LEVOTHYROXINE [Concomitant]
     Active Substance: LEVOTHYROXINE
  20. VITAMINS NOS [Concomitant]
     Active Substance: VITAMINS
  21. NEURONTIN [Concomitant]
     Active Substance: GABAPENTIN
  22. NURTEC ODT [Concomitant]
     Active Substance: RIMEGEPANT SULFATE
  23. SINGULAIR [Concomitant]
     Active Substance: MONTELUKAST SODIUM
  24. SODIUM CHLORIDE [Concomitant]
     Active Substance: SODIUM CHLORIDE
  25. SYMBICORT [Concomitant]
     Active Substance: BUDESONIDE\FORMOTEROL FUMARATE DIHYDRATE
  26. THALITONE [Concomitant]
     Active Substance: CHLORTHALIDONE
  27. TRILIPIX [Concomitant]
     Active Substance: FENOFIBRIC ACID
  28. TOBRAMYCIN [Concomitant]
     Active Substance: TOBRAMYCIN
  29. VITAMIN D2 [Concomitant]
     Active Substance: ERGOCALCIFEROL
  30. XIFAXAN [Concomitant]
     Active Substance: RIFAXIMIN
  31. ZYRTEC [Concomitant]
     Active Substance: CETIRIZINE HYDROCHLORIDE

REACTIONS (1)
  - Infection [Unknown]

NARRATIVE: CASE EVENT DATE: 20221001
